FAERS Safety Report 13138255 (Version 1)
Quarter: 2017Q1

REPORT INFORMATION
  Report Type: Spontaneous
  Country: US (occurrence: US)
  Receive Date: 20170123
  Receipt Date: 20170123
  Transmission Date: 20170428
  Serious: No
  Sender: FDA-Public Use
  Company Number: US-UNITED THERAPEUTICS-UNT-2016-011800

PATIENT
  Age: 84 Year
  Sex: Female
  Weight: 82.86 kg

DRUGS (1)
  1. REMODULIN [Suspect]
     Active Substance: TREPROSTINIL
     Indication: PULMONARY ARTERIAL HYPERTENSION
     Dosage: 0.076 ?G/KG, CONTINUING
     Route: 058
     Dates: start: 20091117

REACTIONS (7)
  - Abdominal pain upper [Unknown]
  - Feeling cold [Unknown]
  - Decreased appetite [Unknown]
  - Asthenia [Unknown]
  - Face oedema [Unknown]
  - Incorrect dose administered by device [Unknown]
  - Nausea [Unknown]

NARRATIVE: CASE EVENT DATE: 201607
